FAERS Safety Report 4346153-5 (Version None)
Quarter: 2004Q2

REPORT INFORMATION
  Report Type: 
  Country: None (occurrence: None)
  Receive Date: 20040426
  Receipt Date: 20030417
  Transmission Date: 20050107
  Serious: No
  Sender: FDA-Public Use
  Company Number: US-GLAXOSMITHKLINE-A0405401A

PATIENT
  Age: 12 Year
  Sex: Male

DRUGS (1)
  1. ZOFRAN [Suspect]
     Indication: NAUSEA
     Route: 048
     Dates: start: 20030201

REACTIONS (1)
  - VOMITING [None]
